FAERS Safety Report 21383490 (Version 1)
Quarter: 2022Q3

REPORT INFORMATION
  Report Type: Spontaneous
  Country: CZ (occurrence: CZ)
  Receive Date: 20220927
  Receipt Date: 20220927
  Transmission Date: 20221027
  Serious: Yes (Hospitalization)
  Sender: FDA-Public Use
  Company Number: CZ-BAYER-2022A133008

PATIENT
  Age: 59 Year
  Sex: Male

DRUGS (3)
  1. XARELTO [Suspect]
     Active Substance: RIVAROXABAN
     Indication: Atrial fibrillation
     Dosage: 20 MG
     Route: 048
  2. ASPIRIN [Suspect]
     Active Substance: ASPIRIN
  3. HEPARIN CALCIUM [Concomitant]
     Active Substance: HEPARIN CALCIUM

REACTIONS (2)
  - Spinal subdural haematoma [Unknown]
  - Paraparesis [Unknown]

NARRATIVE: CASE EVENT DATE: 20220801
